FAERS Safety Report 14482008 (Version 1)
Quarter: 2018Q1

REPORT INFORMATION
  Report Type: Spontaneous
  Country: IT (occurrence: IT)
  Receive Date: 20180202
  Receipt Date: 20180202
  Transmission Date: 20180509
  Serious: Yes (Hospitalization)
  Sender: FDA-Public Use
  Company Number: IT-TEVA-2018-IT-850428

PATIENT
  Age: 30 Year
  Sex: Male

DRUGS (8)
  1. ABILIFY [Suspect]
     Active Substance: ARIPIPRAZOLE
     Dosage: 50 MG, TOTAL
     Route: 048
     Dates: start: 20150830
  2. SERTRALINE [Suspect]
     Active Substance: SERTRALINE HYDROCHLORIDE
     Indication: DEPRESSION
     Dosage: 75 MG, UNK
     Route: 048
     Dates: start: 20150101
  3. DEPAKIN [Suspect]
     Active Substance: VALPROATE SODIUM
     Dosage: 7.5 G, TOTAL
     Route: 048
     Dates: start: 20150830
  4. SERTRALINE [Suspect]
     Active Substance: SERTRALINE HYDROCHLORIDE
     Dosage: 75 MG, UNK
     Route: 048
     Dates: start: 20150101
  5. SERTRALINE [Suspect]
     Active Substance: SERTRALINE HYDROCHLORIDE
     Dosage: 900 MG, TOTAL
     Route: 048
     Dates: start: 20150830
  6. DEPAKIN [Suspect]
     Active Substance: VALPROATE SODIUM
     Indication: OBSESSIVE-COMPULSIVE DISORDER
     Dosage: 500 MG, UNK
     Route: 048
     Dates: start: 20140101
  7. SERTRALINE [Suspect]
     Active Substance: SERTRALINE HYDROCHLORIDE
     Indication: DEPRESSION
     Dosage: 900 MG, TOTAL
     Route: 048
     Dates: start: 20150830
  8. ABILIFY [Suspect]
     Active Substance: ARIPIPRAZOLE
     Indication: SCHIZOTYPAL PERSONALITY DISORDER
     Dosage: 5 MG, UNK
     Route: 048
     Dates: start: 20150101

REACTIONS (5)
  - Nausea [Recovered/Resolved]
  - Vomiting [Recovered/Resolved]
  - Overdose [Recovered/Resolved]
  - Psychomotor retardation [Recovered/Resolved]
  - Off label use [Unknown]

NARRATIVE: CASE EVENT DATE: 20150830
